FAERS Safety Report 6466581-1 (Version None)
Quarter: 2009Q4

REPORT INFORMATION
  Report Type: 
  Country: None (occurrence: None)
  Receive Date: 20091127
  Receipt Date: 20091120
  Transmission Date: 20100525
  Serious: Yes (Other)
  Sender: FDA-Public Use
  Company Number: 2009AL007389

PATIENT
  Age: 55 Year
  Sex: Female

DRUGS (1)
  1. AMANTADINE HCL [Suspect]
     Dosage: 100 MG; BID;

REACTIONS (4)
  - CONDITION AGGRAVATED [None]
  - CORNEAL OEDEMA [None]
  - TREMOR [None]
  - VISUAL ACUITY REDUCED [None]
